FAERS Safety Report 5607767-5 (Version None)
Quarter: 2008Q1

REPORT INFORMATION
  Report Type: 
  Country: None (occurrence: None)
  Receive Date: 20080130
  Receipt Date: 20080129
  Transmission Date: 20080703
  Serious: Yes (Other)
  Sender: FDA-Public Use
  Company Number: DE-BRISTOL-MYERS SQUIBB COMPANY-13883467

PATIENT
  Age: 70 Year
  Sex: Female

DRUGS (4)
  1. LISODREN TABS 500 MG [Suspect]
     Indication: ADRENAL CARCINOMA
     Dates: start: 20060801
  2. HYDROCORTISONE [Concomitant]
     Indication: ADRENAL INSUFFICIENCY
     Dates: start: 20060801
  3. L-THYROXINE [Concomitant]
     Indication: HYPOTHYROIDISM
  4. ASTONIN-H [Concomitant]
     Indication: ADRENAL INSUFFICIENCY

REACTIONS (4)
  - HEPATIC ENZYME INCREASED [None]
  - HYPERCHOLESTEROLAEMIA [None]
  - LEUKOPENIA [None]
  - OVERDOSE [None]
